FAERS Safety Report 6320816-4 (Version None)
Quarter: 2009Q3

REPORT INFORMATION
  Report Type: 
  Country: None (occurrence: None)
  Receive Date: 20090822
  Receipt Date: 20081210
  Transmission Date: 20100115
  Serious: No
  Sender: FDA-Public Use
  Company Number: US-ABBOTT-08P-163-0492231-00

PATIENT
  Sex: Male

DRUGS (7)
  1. NIASPAN [Suspect]
     Indication: HIGH DENSITY LIPOPROTEIN DECREASED
     Dosage: 500MG, AT NIGHT
     Route: 048
     Dates: start: 20081130
  2. ASPIRIN [Concomitant]
     Indication: DRUG USE FOR UNKNOWN INDICATION
     Dosage: 325 MG DAILY
     Route: 048
  3. PRILOSEC [Concomitant]
     Indication: DRUG USE FOR UNKNOWN INDICATION
     Dosage: DAILY
     Route: 048
  4. VERAPAMIL [Concomitant]
     Indication: DRUG USE FOR UNKNOWN INDICATION
     Dosage: DAILY
     Route: 048
  5. ATENOLOL [Concomitant]
     Indication: DRUG USE FOR UNKNOWN INDICATION
     Dosage: DAILY
     Route: 048
  6. LISINOPRIL [Concomitant]
     Indication: DRUG USE FOR UNKNOWN INDICATION
     Dosage: DAILY
     Route: 048
  7. IMPRIMINE [Concomitant]
     Indication: DRUG USE FOR UNKNOWN INDICATION
     Dosage: DAILY
     Route: 048

REACTIONS (1)
  - DIARRHOEA [None]
